FAERS Safety Report 6599308-3 (Version None)
Quarter: 2010Q1

REPORT INFORMATION
  Report Type: 
  Country: None (occurrence: None)
  Receive Date: 20100217
  Receipt Date: 20100204
  Transmission Date: 20100710
  Serious: Yes (Hospitalization, Other)
  Sender: FDA-Public Use
  Company Number: 2009-189179-NL

PATIENT
  Age: 25 Year
  Sex: Female
  Weight: 52.2 kg

DRUGS (32)
  1. NUVARING [Suspect]
     Indication: CONTRACEPTION
     Dosage: VAG
     Route: 067
     Dates: start: 19950901, end: 20061223
  2. AMBIEN (CON.) [Concomitant]
  3. CELEXA (CON.) [Concomitant]
  4. XANAX (CON.) [Concomitant]
  5. VIOXX (CON.) [Concomitant]
  6. AMERGE (CON.) [Concomitant]
  7. EFFEXOR XR (CON.) [Concomitant]
  8. TOPAMAX (CON.) [Concomitant]
  9. RELPAX (CON.) [Concomitant]
  10. METRONIDAZOLE (CON.) [Concomitant]
  11. LEVAQUIN (CON. [Concomitant]
  12. PREDNISONE (CON.) [Concomitant]
  13. ALBUTEROL (CON.) [Concomitant]
  14. DIFLUCAN (CON.) [Concomitant]
  15. LORAZEPAM (CON.) [Concomitant]
  16. SERZONE (CON.) [Concomitant]
  17. METHYLPHENIDATE (CON.) [Concomitant]
  18. AMOXICILLIN (CON.) [Concomitant]
  19. BETAMETHASONE W/CLOTRIMAZOLE (CON.) [Concomitant]
  20. TERAZOL (CON.) [Concomitant]
  21. ORTHO TRI-CYCLEN (CON.) [Concomitant]
  22. YASMIN (CON.) [Concomitant]
  23. NASONEX (CON.) [Concomitant]
  24. CLARINEX (CON.) [Concomitant]
  25. AMITRIPTYLINE (CON.) [Concomitant]
  26. ZOMIG (CON.) [Concomitant]
  27. ACETAMINOPHEN W/CODEINE (CON.) [Concomitant]
  28. ALLERX (CON.) [Concomitant]
  29. MYTUSSIN (CON.) [Concomitant]
  30. SINGULAIR (CON.) [Concomitant]
  31. MYTHYLPREDNISOLONE (CON.) [Concomitant]
  32. VICOPROFEN (CON.) [Concomitant]

REACTIONS (20)
  - AGORAPHOBIA [None]
  - ALOPECIA [None]
  - ANXIETY [None]
  - APHASIA [None]
  - ASTHENIA [None]
  - ATRIAL SEPTAL DEFECT [None]
  - BREAST PAIN [None]
  - CEREBROVASCULAR ACCIDENT [None]
  - CLUMSINESS [None]
  - DEPRESSION [None]
  - DYSARTHRIA [None]
  - EPISTAXIS [None]
  - HEAD DEFORMITY [None]
  - HIATUS HERNIA [None]
  - INSOMNIA [None]
  - MIGRAINE [None]
  - RASH [None]
  - SKIN DISORDER [None]
  - URINARY TRACT INFECTION [None]
  - VASOSPASM [None]
